FAERS Safety Report 14889714 (Version 1)
Quarter: 2018Q2

REPORT INFORMATION
  Report Type: Report from Study
  Country: US (occurrence: US)
  Receive Date: 20180514
  Receipt Date: 20180514
  Transmission Date: 20180711
  Serious: Yes (Hospitalization)
  Sender: FDA-Public Use
  Company Number: US-ROCHE-2119104

PATIENT
  Age: 77 Year
  Sex: Male

DRUGS (1)
  1. OCREVUS [Suspect]
     Active Substance: OCRELIZUMAB
     Indication: PRODUCT USED FOR UNKNOWN INDICATION
     Dosage: UNKNOWN
     Route: 065
     Dates: start: 20180330

REACTIONS (5)
  - Renal failure [Unknown]
  - Pyrexia [Unknown]
  - Pneumonia aspiration [Unknown]
  - Respiratory arrest [Unknown]
  - Sepsis [Unknown]

NARRATIVE: CASE EVENT DATE: 20180413
